FAERS Safety Report 22142869 (Version 1)
Quarter: 2023Q1

REPORT INFORMATION
  Report Type: Spontaneous
  Country: US (occurrence: US)
  Receive Date: 20230327
  Receipt Date: 20230327
  Transmission Date: 20230417
  Serious: Yes (Other)
  Sender: FDA-Public Use
  Company Number: US-FreseniusKabi-FK202303608

PATIENT
  Age: 66 Year
  Sex: Male

DRUGS (6)
  1. XYLOCAINE-MPF [Suspect]
     Active Substance: LIDOCAINE HYDROCHLORIDE
     Indication: Local anaesthesia
     Dosage: LOCAL DERMAL INJECTION SITE?300 MG PER 30 ML (10 MG PER ML)?PRX491237
     Route: 050
  2. SODIUM BICARBONATE [Suspect]
     Active Substance: SODIUM BICARBONATE
     Indication: Local anaesthesia
     Dosage: 50 MEQ PER 50 ML(1 MEQ PER ML)?908950; 42402A?LOCAL DERMAL INJECTION SITE
     Route: 050
  3. LIDOCAINE HYDROCHLORIDE [Concomitant]
     Active Substance: LIDOCAINE HYDROCHLORIDE
     Indication: Local anaesthesia
     Dates: start: 20230306, end: 20230306
  4. TERAZOSIN HYDROCHLORIDE [Concomitant]
     Active Substance: TERAZOSIN HYDROCHLORIDE
     Indication: Product used for unknown indication
  5. ALLOPURINOL SODIUM [Concomitant]
     Active Substance: ALLOPURINOL SODIUM
     Indication: Product used for unknown indication
  6. LISINOPRIL [Concomitant]
     Active Substance: LISINOPRIL
     Indication: Product used for unknown indication

REACTIONS (6)
  - Epidermal necrosis [Recovering/Resolving]
  - Injection site pain [Recovering/Resolving]
  - Injection site vesicles [Recovering/Resolving]
  - Eschar [Recovering/Resolving]
  - Off label use [None]
  - Off label use [None]

NARRATIVE: CASE EVENT DATE: 20230301
